FAERS Safety Report 19097915 (Version 1)
Quarter: 2021Q2

REPORT INFORMATION
  Report Type: Spontaneous
  Country: US (occurrence: US)
  Receive Date: 20210406
  Receipt Date: 20210406
  Transmission Date: 20210717
  Serious: No
  Sender: FDA-Public Use
  Company Number: None

PATIENT
  Age: 68 Year
  Sex: Male

DRUGS (22)
  1. REPATHA [Suspect]
     Active Substance: EVOLOCUMAB
     Indication: TYPE V HYPERLIPIDAEMIA
     Dosage: ?          OTHER FREQUENCY:EVERY 2 WEEKS;?
     Route: 058
     Dates: start: 20200427
  2. COLCHICINE. [Concomitant]
     Active Substance: COLCHICINE
     Dates: start: 20210331
  3. BRILINTA [Concomitant]
     Active Substance: TICAGRELOR
     Dates: start: 20200924
  4. HYDRALAZINE [Concomitant]
     Active Substance: HYDRALAZINE HYDROCHLORIDE
     Dates: start: 20210301
  5. ARIPIPRAZOLE. [Concomitant]
     Active Substance: ARIPIPRAZOLE
     Dates: start: 20201014
  6. ESCITALOPRAM [Concomitant]
     Active Substance: ESCITALOPRAM OXALATE
     Dates: start: 20201101
  7. ALBUTEROL. [Concomitant]
     Active Substance: ALBUTEROL
     Dates: start: 20210112
  8. HYDROCO/APAP [Concomitant]
     Active Substance: ACETAMINOPHEN\HYDROCODONE
     Dates: start: 20210331
  9. LABETALOL [Concomitant]
     Active Substance: LABETALOL\LABETALOL HYDROCHLORIDE
     Dates: start: 20210303
  10. LABETALOL [Concomitant]
     Active Substance: LABETALOL\LABETALOL HYDROCHLORIDE
     Dates: start: 20201224
  11. DOXAZOSIN [Concomitant]
     Active Substance: DOXAZOSIN MESYLATE
     Dates: start: 20210402
  12. ELIQUIS [Concomitant]
     Active Substance: APIXABAN
     Dates: start: 20210222
  13. LANTUS [Concomitant]
     Active Substance: INSULIN GLARGINE
     Dates: start: 20201103
  14. CLONIDINE. [Concomitant]
     Active Substance: CLONIDINE
     Dates: start: 20210301
  15. VASCEPA [Concomitant]
     Active Substance: ICOSAPENT ETHYL
     Dates: start: 20201228
  16. ALLOPURINOL. [Concomitant]
     Active Substance: ALLOPURINOL
     Dates: start: 20201012
  17. LABETALOL [Concomitant]
     Active Substance: LABETALOL\LABETALOL HYDROCHLORIDE
     Dates: start: 20210120
  18. AMLODIPINE [Concomitant]
     Active Substance: AMLODIPINE BESYLATE
     Dates: start: 20210108
  19. VICTOZA [Concomitant]
     Active Substance: LIRAGLUTIDE
     Dates: start: 20210217
  20. TRIAMCINOLON [Concomitant]
     Dates: start: 20210329
  21. BUMETANIDE. [Concomitant]
     Active Substance: BUMETANIDE
     Dates: start: 20210402
  22. METHYLPRED [Concomitant]
     Active Substance: METHYLPREDNISOLONE
     Dates: start: 20210402

REACTIONS (2)
  - Product dose omission issue [None]
  - Cerebrovascular accident [None]

NARRATIVE: CASE EVENT DATE: 20210405
